FAERS Safety Report 6065022-6 (Version None)
Quarter: 2009Q1

REPORT INFORMATION
  Report Type: 
  Country: None (occurrence: None)
  Receive Date: 20090203
  Receipt Date: 20090203
  Transmission Date: 20090719
  Serious: Yes (Disabling)
  Sender: FDA-Public Use
  Company Number: None

PATIENT
  Sex: Female
  Weight: 77.1115 kg

DRUGS (2)
  1. ALLERX AM METHSOPOLAMINE NITRATE 2.5 MG CORNERSTON BIOPHARMA, CARY, NC [Suspect]
     Indication: VIRAL INFECTION
     Dosage: 1 YELLOW TABLE AM 1/DAY PO
     Route: 048
     Dates: start: 20090123, end: 20090128
  2. ALLERX PM SAME WITH CHLORPHENIRAMINE CONERSTON BIOPHARMA, CARY, NC [Suspect]
     Dosage: 1 BLUE TABLE PM 1/DAY PO
     Route: 048

REACTIONS (4)
  - CONSTIPATION [None]
  - DRUG PRESCRIBING ERROR [None]
  - DYSURIA [None]
  - PAIN [None]
